FAERS Safety Report 7635183-3 (Version None)
Quarter: 2011Q3

REPORT INFORMATION
  Report Type: 
  Country: None (occurrence: None)
  Receive Date: 20110726
  Receipt Date: 20110725
  Transmission Date: 20111222
  Serious: Yes (Death)
  Sender: FDA-Public Use
  Company Number: CA-BAYER-2011-064404

PATIENT
  Age: 44 Year
  Sex: Female

DRUGS (1)
  1. YAZ [Suspect]

REACTIONS (4)
  - ASTHENIA [None]
  - ABDOMINAL PAIN [None]
  - CARDIAC ARREST [None]
  - PULMONARY EMBOLISM [None]
